FAERS Safety Report 15377998 (Version 1)
Quarter: 2018Q3

REPORT INFORMATION
  Report Type: Spontaneous
  Country: US (occurrence: US)
  Receive Date: 20180913
  Receipt Date: 20180913
  Transmission Date: 20181010
  Serious: Yes (Death, Other)
  Sender: FDA-Public Use
  Company Number: US-TARO PHARMACEUTICALS USA.,INC-2018SUN00451

PATIENT
  Age: 41 Year
  Sex: Female

DRUGS (1)
  1. ACETAMINOPHEN. [Suspect]
     Active Substance: ACETAMINOPHEN
     Indication: PRODUCT USED FOR UNKNOWN INDICATION
     Dosage: UNK
     Route: 065

REACTIONS (10)
  - Hypotension [Unknown]
  - Coagulopathy [Unknown]
  - Toxicity to various agents [Fatal]
  - Depressed level of consciousness [Unknown]
  - Leukocytosis [Unknown]
  - Respiratory depression [Unknown]
  - Metabolic acidosis [Unknown]
  - Rhabdomyolysis [Unknown]
  - Hepatotoxicity [Unknown]
  - Anion gap increased [Unknown]
